FAERS Safety Report 7762904-1 (Version None)
Quarter: 2011Q3

REPORT INFORMATION
  Report Type: 
  Country: None (occurrence: None)
  Receive Date: 20110920
  Receipt Date: 20110914
  Transmission Date: 20111222
  Serious: Yes (Other)
  Sender: FDA-Public Use
  Company Number: CHPA2011US12530

PATIENT
  Age: 59 Year
  Sex: Female

DRUGS (2)
  1. VOLTAREN [Suspect]
     Indication: ARTHRALGIA
     Dosage: UNK, BID
     Route: 061
     Dates: start: 20110911, end: 20110913
  2. NUCYNTA [Concomitant]
     Indication: PAIN
     Dosage: UNK
     Dates: start: 20110912, end: 20110912

REACTIONS (3)
  - OFF LABEL USE [None]
  - VAGINAL HAEMORRHAGE [None]
  - MUSCLE SPASMS [None]
